FAERS Safety Report 5804593-9 (Version None)
Quarter: 2008Q3

REPORT INFORMATION
  Report Type: 
  Country: None (occurrence: None)
  Receive Date: 20080702
  Receipt Date: 20070504
  Transmission Date: 20090109
  Serious: Yes (Hospitalization)
  Sender: FDA-Public Use
  Company Number: 496051

PATIENT
  Age: 24 Year
  Sex: Male

DRUGS (6)
  1. KLONOPIN [Suspect]
     Indication: PANIC ATTACK
     Dosage: 2 MG 2 PER DAY
  2. RITALIN [Concomitant]
  3. METHYLPHENIDATE HCL [Concomitant]
  4. ANTIASTHMATIC DRUG NOS (ANTIASTHMATIC DRUG NOS) [Concomitant]
  5. PREDNISONE [Concomitant]
  6. TOPAMAX [Concomitant]

REACTIONS (8)
  - ASTHMA [None]
  - FEELING JITTERY [None]
  - HEADACHE [None]
  - MEMORY IMPAIRMENT [None]
  - MENTAL IMPAIRMENT [None]
  - PAIN IN EXTREMITY [None]
  - PALPITATIONS [None]
  - RASH [None]
